FAERS Safety Report 23191956 (Version 3)
Quarter: 2023Q4

REPORT INFORMATION
  Report Type: Other
  Country: US (occurrence: US)
  Receive Date: 20231116
  Receipt Date: 20231225
  Transmission Date: 20240109
  Serious: No
  Sender: FDA-Public Use
  Company Number: US-TRAVERE-2023TVT00653

PATIENT
  Sex: Female

DRUGS (17)
  1. FILSPARI [Suspect]
     Active Substance: SPARSENTAN
     Indication: IgA nephropathy
     Route: 048
     Dates: start: 20231017
  2. FILSPARI [Suspect]
     Active Substance: SPARSENTAN
     Route: 048
  3. CANNABIS SATIVA SUBSP. INDICA TOP [Concomitant]
     Active Substance: CANNABIS SATIVA SUBSP. INDICA TOP
  4. Provitalize [Concomitant]
  5. LOSARTAN POTASSIUM [Concomitant]
     Active Substance: LOSARTAN POTASSIUM
  6. SYMBICORT [Concomitant]
     Active Substance: BUDESONIDE\FORMOTEROL FUMARATE DIHYDRATE
  7. PREDNISONE [Concomitant]
     Active Substance: PREDNISONE
  8. TYLENOL [Concomitant]
     Active Substance: ACETAMINOPHEN
  9. Multivitamins tablet [Concomitant]
  10. SYNTHROID [Concomitant]
     Active Substance: LEVOTHYROXINE SODIUM
  11. Zardiance [Concomitant]
  12. ZOLOFT [Concomitant]
     Active Substance: SERTRALINE HYDROCHLORIDE
  13. Glucosamine-Chondroitin-D3 [Concomitant]
  14. Melatonin + L-theanine [Concomitant]
  15. Melatonin + L-theanine [Concomitant]
  16. Guaifenesin-dextromethorphan [Concomitant]
  17. Robitussin cold-flu night [Concomitant]

REACTIONS (8)
  - Drug effect less than expected [Unknown]
  - Haemoptysis [None]
  - Nausea [None]
  - Illness [None]
  - Dyspnoea [None]
  - Contraindicated product administered [Unknown]
  - Dizziness [None]
  - Headache [None]
